FAERS Safety Report 7686391-7 (Version None)
Quarter: 2011Q3

REPORT INFORMATION
  Report Type: 
  Country: None (occurrence: None)
  Receive Date: 20110816
  Receipt Date: 20110803
  Transmission Date: 20111222
  Serious: Yes (Hospitalization, Other)
  Sender: FDA-Public Use
  Company Number: JP-ELI_LILLY_AND_COMPANY-JP201108001403

PATIENT
  Age: 25 Year
  Sex: Male
  Weight: 68 kg

DRUGS (5)
  1. ZYPREXA [Suspect]
     Indication: SCHIZOPHRENIA
     Dosage: 10 MG, QD
     Route: 048
  2. ZYPREXA [Suspect]
     Dosage: 10 MG, QD
     Route: 048
  3. ZYPREXA [Suspect]
     Dosage: 7.5 MG, QD
     Route: 048
  4. VALPROIC ACID [Concomitant]
     Dosage: UNK
  5. ZYPREXA [Suspect]
     Dosage: 20 MG, QD
     Route: 048

REACTIONS (4)
  - WEIGHT INCREASED [None]
  - SOMNOLENCE [None]
  - HYPERPHAGIA [None]
  - PSYCHIATRIC SYMPTOM [None]
